FAERS Safety Report 18519748 (Version 3)
Quarter: 2021Q1

REPORT INFORMATION
  Report Type: Spontaneous
  Country: JP (occurrence: JP)
  Receive Date: 20201119
  Receipt Date: 20210216
  Transmission Date: 20210419
  Serious: Yes (Hospitalization, Other)
  Sender: FDA-Public Use
  Company Number: JP-BRISTOL-MYERS SQUIBB COMPANY-BMS-2020-096218

PATIENT
  Age: 75 Year
  Sex: Male

DRUGS (2)
  1. YERVOY [Suspect]
     Active Substance: IPILIMUMAB
     Indication: RENAL CELL CARCINOMA
     Dosage: UNK UNK, Q3WK
     Route: 065
  2. OPDIVO [Suspect]
     Active Substance: NIVOLUMAB
     Indication: RENAL CELL CARCINOMA
     Dosage: UNK UNK, Q3WK
     Route: 065

REACTIONS (11)
  - Nausea [Unknown]
  - Drug eruption [Unknown]
  - Decreased appetite [Unknown]
  - Metastases to central nervous system [Unknown]
  - Rash [Unknown]
  - Bacteraemia [Unknown]
  - Sepsis [Unknown]
  - Diarrhoea [Recovering/Resolving]
  - Hepatic function abnormal [Unknown]
  - Gastritis [Unknown]
  - Brain oedema [Unknown]
